FAERS Safety Report 10713179 (Version 2)
Quarter: 2015Q3

REPORT INFORMATION
  Report Type: Spontaneous
  Country: US (occurrence: US)
  Receive Date: 20150115
  Receipt Date: 20150819
  Transmission Date: 20151125
  Serious: No
  Sender: FDA-Public Use
  Company Number: US-GILEAD-2015-0131627

PATIENT
  Age: 70 Year
  Sex: Female

DRUGS (17)
  1. FLEXERIL [Concomitant]
     Active Substance: CYCLOBENZAPRINE HYDROCHLORIDE
  2. SINGULAIR [Concomitant]
     Active Substance: MONTELUKAST SODIUM
  3. SYNTHROID [Concomitant]
     Active Substance: LEVOTHYROXINE SODIUM
  4. LETAIRIS [Suspect]
     Active Substance: AMBRISENTAN
     Indication: PRODUCT USED FOR UNKNOWN INDICATION
     Dosage: 10 MG, QD
     Route: 065
     Dates: start: 20090911
  5. ALLEGRA [Concomitant]
     Active Substance: FEXOFENADINE HYDROCHLORIDE
  6. SYMBICORT [Concomitant]
     Active Substance: BUDESONIDE\FORMOTEROL FUMARATE DIHYDRATE
  7. OMEGA 3 FISH OIL                   /01334101/ [Concomitant]
  8. SKELAXIN [Concomitant]
     Active Substance: METAXALONE
  9. COENZYME Q10 [Concomitant]
     Active Substance: UBIDECARENONE
  10. PREDNISONE. [Concomitant]
     Active Substance: PREDNISONE
  11. CHOLEST OFF NATURE MADE [Concomitant]
  12. VITAMIN D                          /00107901/ [Concomitant]
     Active Substance: ERGOCALCIFEROL
  13. METAXALONE. [Concomitant]
     Active Substance: METAXALONE
  14. PROAIR HFA [Concomitant]
     Active Substance: ALBUTEROL SULFATE
  15. ATENOLOL. [Concomitant]
     Active Substance: ATENOLOL
  16. LASIX [Concomitant]
     Active Substance: FUROSEMIDE
  17. WARFARIN [Concomitant]
     Active Substance: WARFARIN

REACTIONS (3)
  - Balance disorder [Not Recovered/Not Resolved]
  - Inner ear disorder [Unknown]
  - Dizziness postural [Unknown]

NARRATIVE: CASE EVENT DATE: 20141201
